FAERS Safety Report 8866589 (Version 1)
Quarter: 2012Q4

REPORT INFORMATION
  Report Type: 
  Country: US (occurrence: US)
  Receive Date: 20121025
  Receipt Date: 20121025
  Transmission Date: 20130627
  Serious: No
  Sender: FDA-Public Use
  Company Number: US-AMGEN-USASP2012012942

PATIENT
  Age: 54 Year
  Sex: Female
  Weight: 90.7 kg

DRUGS (22)
  1. ENBREL [Suspect]
     Indication: PSORIASIS
     Dosage: UNK
     Dates: start: 201102
  2. ENBREL [Suspect]
     Indication: PSORIATIC ARTHROPATHY
  3. HUMIRA [Concomitant]
     Indication: PSORIATIC ARTHROPATHY
     Dosage: 40 mg, qwk (40 mg/0.8 ml)
     Route: 058
     Dates: start: 201005, end: 201101
  4. HUMIRA [Concomitant]
     Indication: PSORIASIS
  5. METHOTREXATE [Concomitant]
     Indication: PSORIATIC ARTHROPATHY
     Dosage: UNK UNK, qwk
  6. METHOTREXATE [Concomitant]
     Indication: PSORIASIS
  7. LEVOTHYROXINE SODIUM [Concomitant]
     Indication: AUTOIMMUNE THYROIDITIS
     Dosage: 125 mug, qd
  8. LEVOTHYROXINE SODIUM [Concomitant]
     Indication: HYPOTHYROIDISM
  9. SERTRALINE HYDROCHLORIDE [Concomitant]
     Indication: DEPRESSION
     Dosage: UNK
  10. SERTRALINE HYDROCHLORIDE [Concomitant]
     Indication: NERVOUSNESS
  11. SERTRALINE HYDROCHLORIDE [Concomitant]
     Indication: TREMOR
  12. SERTRALINE HYDROCHLORIDE [Concomitant]
     Indication: CRYING
  13. ALPRAZOLAM [Concomitant]
     Indication: DEPRESSION
     Dosage: 0.5 mg, UNK (1.5 tablet)
  14. ALPRAZOLAM [Concomitant]
     Indication: NERVOUSNESS
  15. FOLIC ACID [Concomitant]
     Dosage: UNK
  16. MELOXICAM [Concomitant]
     Indication: MIGRAINE
     Dosage: UNK
     Dates: end: 20110518
  17. MELOXICAM [Concomitant]
     Dosage: UNK, qwk
     Dates: start: 20110518
  18. LANSOPRAZOLE [Concomitant]
     Indication: ABDOMINAL PAIN UPPER
     Dosage: UNK UNK, qd
     Dates: start: 201105
  19. KAPSOVIT [Concomitant]
     Dosage: UNK
  20. YEAST [Concomitant]
     Dosage: UNK
  21. FISH OIL [Concomitant]
     Dosage: UNK
  22. ACETYLSALICYLIC ACID [Concomitant]
     Dosage: 81 mg, UNK

REACTIONS (13)
  - Lacrimation increased [Unknown]
  - Malaise [Unknown]
  - Red blood cell sedimentation rate increased [Unknown]
  - Hair disorder [Unknown]
  - Erythema of eyelid [Unknown]
  - Dry eye [Unknown]
  - Inflammation [Unknown]
  - Arthralgia [Unknown]
  - Joint swelling [Unknown]
  - Oedema peripheral [Unknown]
  - Injection site warmth [Unknown]
  - Injection site pruritus [Unknown]
  - Injection site rash [Unknown]
